FAERS Safety Report 6763277-3 (Version None)
Quarter: 2010Q2

REPORT INFORMATION
  Report Type: 
  Country: None (occurrence: None)
  Receive Date: 20100610
  Receipt Date: 20100604
  Transmission Date: 20101027
  Serious: Yes (Hospitalization)
  Sender: FDA-Public Use
  Company Number: RO-BRACCO-000001

PATIENT
  Sex: Female

DRUGS (3)
  1. MULTIHANCE [Suspect]
     Indication: NUCLEAR MAGNETIC RESONANCE IMAGING
     Dosage: 0.1 ML/ KG BODY WEIGHT
     Route: 042
     Dates: start: 20100603, end: 20100603
  2. MULTIHANCE [Suspect]
     Indication: BREAST CANCER
     Dosage: 0.1 ML/ KG BODY WEIGHT
     Route: 042
     Dates: start: 20100603, end: 20100603
  3. MULTIHANCE [Suspect]
     Indication: METASTASIS
     Dosage: 0.1 ML/ KG BODY WEIGHT
     Route: 042
     Dates: start: 20100603, end: 20100603

REACTIONS (3)
  - ATRIAL FLUTTER [None]
  - DYSPNOEA [None]
  - TACHYCARDIA [None]
